FAERS Safety Report 13342043 (Version 1)
Quarter: 2017Q1

REPORT INFORMATION
  Report Type: Spontaneous
  Country: US (occurrence: US)
  Receive Date: 20170316
  Receipt Date: 20170316
  Transmission Date: 20170428
  Serious: Yes (Life-Threatening, Hospitalization, Disabling)
  Sender: FDA-Public Use
  Company Number: None

PATIENT
  Age: 30 Year
  Sex: Female
  Weight: 65.83 kg

DRUGS (17)
  1. RED YEAST RICE [Concomitant]
     Active Substance: DIETARY SUPPLEMENT
  2. VITAMIN K [Concomitant]
     Active Substance: PHYTONADIONE
  3. TEGRETOL [Concomitant]
     Active Substance: CARBAMAZEPINE
  4. VITAMIN C [Concomitant]
     Active Substance: ASCORBIC ACID
  5. MAGNESIUM [Concomitant]
     Active Substance: MAGNESIUM
  6. ALPAZOLAM [Concomitant]
     Active Substance: ALPRAZOLAM
  7. FISH OIL [Concomitant]
     Active Substance: FISH OIL
  8. FOLIC ACID. [Concomitant]
     Active Substance: FOLIC ACID
  9. MEGA B [Concomitant]
  10. CLOMIPRAMINE [Suspect]
     Active Substance: CLOMIPRAMINE
     Indication: ABNORMAL BEHAVIOUR
     Route: 048
     Dates: start: 20160513, end: 20160702
  11. VITAMIN D3 [Concomitant]
     Active Substance: CHOLECALCIFEROL
  12. ONE^N DAY [Concomitant]
  13. ENTY-MEDICO (LACTO [Concomitant]
  14. MULTIVITAMIN [Concomitant]
     Active Substance: VITAMINS
  15. CELEXA [Concomitant]
     Active Substance: CITALOPRAM HYDROBROMIDE
  16. KYODOPHILUS [Concomitant]
  17. CALCIUM [Concomitant]
     Active Substance: CALCIUM

REACTIONS (3)
  - Burns third degree [None]
  - Stevens-Johnson syndrome [None]
  - Pain [None]

NARRATIVE: CASE EVENT DATE: 20160707
